FAERS Safety Report 4902839-2 (Version None)
Quarter: 2006Q1

REPORT INFORMATION
  Report Type: 
  Country: None (occurrence: None)
  Receive Date: 20060207
  Receipt Date: 20060111
  Transmission Date: 20060701
  Serious: Yes (Hospitalization)
  Sender: FDA-Public Use
  Company Number: PHHO2006US00832

PATIENT
  Age: 75 Year
  Sex: Female
  Weight: 77.7 kg

DRUGS (11)
  1. BENAZEPRIL HCL AND HYDROCHLOROTHIAZIDE [Suspect]
     Indication: HYPERTENSION
     Dosage: LEVEL 1
     Route: 048
     Dates: start: 20040801, end: 20040905
  2. BENAZEPRIL HCL AND HYDROCHLOROTHIAZIDE [Suspect]
     Dosage: LEVEL 2
     Route: 048
     Dates: start: 20040906, end: 20041004
  3. BENAZEPRIL HCL AND HYDROCHLOROTHIAZIDE [Suspect]
     Dosage: UNK, LEVEL 3
     Route: 048
     Dates: start: 20041005, end: 20041115
  4. BENAZEPRIL HCL AND HYDROCHLOROTHIAZIDE [Suspect]
     Dosage: UNK, LEVEL 3
     Route: 048
     Dates: start: 20041205
  5. TOPROL-XL [Concomitant]
     Indication: HYPERTENSION
     Dosage: 50 MG, QD
     Route: 048
     Dates: start: 20050112
  6. AMIODARONE [Concomitant]
     Indication: SICK SINUS SYNDROME
     Dosage: 200 MG, QD
     Route: 048
  7. PROTONIX [Concomitant]
     Indication: GASTROOESOPHAGEAL REFLUX DISEASE
     Dosage: 40 MG, QD
     Route: 048
     Dates: start: 20040123
  8. LEXAPRO [Concomitant]
     Indication: DEPRESSION
     Dosage: 10 MG, QD
     Route: 048
     Dates: start: 20040816
  9. ASPIRIN [Concomitant]
     Indication: ANTICOAGULANT THERAPY
     Dosage: 81 MG, QD
     Route: 048
     Dates: start: 20041123
  10. KLOR-CON [Concomitant]
     Indication: MINERAL SUPPLEMENTATION
     Dosage: 10 MEQ, QD
     Route: 048
     Dates: start: 20040405
  11. BENTYL [Concomitant]
     Indication: MUSCLE SPASMS
     Dosage: 10 MG, PRN
     Route: 048
     Dates: start: 20041123

REACTIONS (6)
  - BACK PAIN [None]
  - CONVULSION [None]
  - HYPONATRAEMIA [None]
  - HYPOTENSION [None]
  - INAPPROPRIATE ANTIDIURETIC HORMONE SECRETION [None]
  - SPINAL COMPRESSION FRACTURE [None]
